FAERS Safety Report 10258457 (Version 1)
Quarter: 2014Q2

REPORT INFORMATION
  Report Type: Spontaneous
  Country: US (occurrence: None)
  Receive Date: 20140624
  Receipt Date: 20140624
  Transmission Date: 20141212
  Serious: Yes (Hospitalization)
  Sender: FDA-Public Use
  Company Number: None

PATIENT
  Sex: 0

DRUGS (1)
  1. NEULASTA 6MG AMGEN [Suspect]
     Indication: WHITE BLOOD CELL COUNT DECREASED
     Dosage: 1 SYRINGE, DAY AFTER CHEMO., SUBCUTANEOUS
     Route: 058
     Dates: start: 20140416

REACTIONS (1)
  - Febrile neutropenia [None]
